FAERS Safety Report 17666827 (Version 1)
Quarter: 2020Q2

REPORT INFORMATION
  Report Type: Spontaneous
  Country: US (occurrence: US)
  Receive Date: 20200414
  Receipt Date: 20200414
  Transmission Date: 20200713
  Serious: No
  Sender: FDA-Public Use
  Company Number: US-JAZZ-2020-US-000215

PATIENT
  Sex: Female

DRUGS (11)
  1. PARSLEY. [Concomitant]
     Active Substance: PARSLEY
     Dosage: UNK
  2. SUNOSI [Suspect]
     Active Substance: SOLRIAMFETOL
     Indication: NARCOLEPSY
     Dosage: 150 MG
     Route: 065
  3. LISINOPRIL. [Concomitant]
     Active Substance: LISINOPRIL
  4. TESTOSTERONE. [Concomitant]
     Active Substance: TESTOSTERONE
  5. ACETAMINOPHEN. [Concomitant]
     Active Substance: ACETAMINOPHEN
  6. LUNESTA [Concomitant]
     Active Substance: ESZOPICLONE
  7. DESONIDE. [Concomitant]
     Active Substance: DESONIDE
  8. TRIAMCINOLONE [Concomitant]
     Active Substance: TRIAMCINOLONE
  9. 5-HTPN [Concomitant]
     Active Substance: OXITRIPTAN
  10. BACLOFEN. [Concomitant]
     Active Substance: BACLOFEN
  11. NUVIGIL [Concomitant]
     Active Substance: ARMODAFINIL

REACTIONS (1)
  - Headache [Recovering/Resolving]
